FAERS Safety Report 6159130-9 (Version None)
Quarter: 2009Q2

REPORT INFORMATION
  Report Type: 
  Country: None (occurrence: None)
  Receive Date: 20090417
  Receipt Date: 20090408
  Transmission Date: 20091009
  Serious: Yes (Other)
  Sender: FDA-Public Use
  Company Number: US-JNJFOC-20090401442

PATIENT
  Sex: Female
  Weight: 49.9 kg

DRUGS (9)
  1. REMICADE [Suspect]
     Dosage: 3 VIALS
     Route: 042
  2. REMICADE [Suspect]
     Dosage: 3 VIALS
     Route: 042
  3. REMICADE [Suspect]
     Indication: COLITIS ULCERATIVE
     Dosage: 3 VIALS
     Route: 042
  4. INTACORT [Concomitant]
  5. NEXIUM [Concomitant]
  6. NORTRIPTYLINE HCL [Concomitant]
  7. GENERUIA [Concomitant]
  8. ASPIRIN [Concomitant]
  9. EVISTA [Concomitant]

REACTIONS (1)
  - LUNG NEOPLASM MALIGNANT [None]
